FAERS Safety Report 4417759-X (Version None)
Quarter: 2004Q2

REPORT INFORMATION
  Report Type: 
  Country: None (occurrence: None)
  Receive Date: 20040621
  Receipt Date: 20040504
  Transmission Date: 20050107
  Serious: Yes (Other)
  Sender: FDA-Public Use
  Company Number: PHEH2004US03652

PATIENT
  Age: 67 Year
  Sex: Female

DRUGS (7)
  1. ZOMETA [Suspect]
     Indication: MULTIPLE MYELOMA
  2. OXYCONTIN [Concomitant]
  3. PANTOPRAZOLE [Concomitant]
  4. CONJUGATED ESTROGENS [Concomitant]
  5. WELLBUTRIN [Concomitant]
  6. AMBIEN [Concomitant]
  7. CELEBREX [Concomitant]

REACTIONS (6)
  - BONE DEBRIDEMENT [None]
  - BONE DISORDER [None]
  - IMPAIRED HEALING [None]
  - OSTEOMYELITIS ACUTE [None]
  - OSTEONECROSIS [None]
  - TOOTH EXTRACTION [None]
